FAERS Safety Report 16424614 (Version 1)
Quarter: 2019Q2

REPORT INFORMATION
  Report Type: Spontaneous
  Country: DE (occurrence: DE)
  Receive Date: 20190613
  Receipt Date: 20190613
  Transmission Date: 20190711
  Serious: Yes (Disabling)
  Sender: FDA-Public Use
  Company Number: DE-DRREDDYS-GER/GER/19/0110864

PATIENT
  Age: 29 Year
  Sex: Male
  Weight: 73 kg

DRUGS (1)
  1. CIPROFLOXACIN. [Suspect]
     Active Substance: CIPROFLOXACIN
     Indication: PRODUCT USED FOR UNKNOWN INDICATION
     Dosage: 7X250MG
     Route: 048
     Dates: start: 20121101, end: 20121107

REACTIONS (8)
  - Palmoplantar keratoderma [Recovered/Resolved with Sequelae]
  - Hyperkeratosis [Recovered/Resolved with Sequelae]
  - Bronchial hyperreactivity [Recovered/Resolved with Sequelae]
  - Oedema mucosal [Not Recovered/Not Resolved]
  - Bronchitis chronic [Recovered/Resolved with Sequelae]
  - Mobility decreased [Not Recovered/Not Resolved]
  - Neuralgia [Recovered/Resolved with Sequelae]
  - Impaired quality of life [Not Recovered/Not Resolved]

NARRATIVE: CASE EVENT DATE: 2012
